FAERS Safety Report 6639335-0 (Version None)
Quarter: 2010Q1

REPORT INFORMATION
  Report Type: 
  Country: None (occurrence: None)
  Receive Date: 20100315
  Receipt Date: 20100301
  Transmission Date: 20100710
  Serious: Yes (Hospitalization)
  Sender: FDA-Public Use
  Company Number: A-NJ2010-34160

PATIENT
  Age: 83 Year
  Sex: Female

DRUGS (18)
  1. TRACLEER [Suspect]
     Indication: PULMONARY ARTERIAL HYPERTENSION
     Dosage: 62.5 MG, BID, ORAL
     Route: 048
     Dates: start: 20091218
  2. CARDIZEM [Concomitant]
  3. ASPIRIN [Concomitant]
  4. POTASSIUM (POTASSIUM) [Concomitant]
  5. TORSEMIDE [Concomitant]
  6. ALLOPURINOL [Concomitant]
  7. TEMAZEPAM [Concomitant]
  8. B-COMPLEX (NICOTINAMIDE, PYRIDOXINE HYDROCHLORIDE, RIBOFLAVIN, THIAMIN [Concomitant]
  9. VITAMIN B12 (COBAMAMIDE) [Concomitant]
  10. ASCORBIC ACID [Concomitant]
  11. FISH OIL (FISH OIL) [Concomitant]
  12. GARLIC (ALLIUM SATIVUM) [Concomitant]
  13. IRON (IRON) [Concomitant]
  14. ZINC (ZINC OXIDE) [Concomitant]
  15. TYLENOL [Concomitant]
  16. OSCAL (CALCIUM CARBONATE) [Concomitant]
  17. ALBUTEROL [Concomitant]
  18. OXYGEN (OXYGEN) [Concomitant]

REACTIONS (8)
  - CARDIAC FAILURE CONGESTIVE [None]
  - CONDITION AGGRAVATED [None]
  - CYSTITIS [None]
  - DIZZINESS [None]
  - OEDEMA PERIPHERAL [None]
  - OFF LABEL USE [None]
  - OXYGEN SATURATION DECREASED [None]
  - PULMONARY OEDEMA [None]
